FAERS Safety Report 10211014 (Version 1)
Quarter: 2014Q2

REPORT INFORMATION
  Report Type: Spontaneous
  Country: US (occurrence: None)
  Receive Date: 20140530
  Receipt Date: 20140530
  Transmission Date: 20141212
  Serious: No
  Sender: FDA-Public Use
  Company Number: None

PATIENT
  Age: 35 Year
  Sex: Male

DRUGS (1)
  1. ADDERALL 30MGCOREPHARMA [Suspect]
     Indication: ATTENTION DEFICIT/HYPERACTIVITY DISORDER
     Dosage: 1/2 PILL TWICE DAILY TAKEN BY MOUTH
     Route: 048
     Dates: start: 20140501, end: 20140501

REACTIONS (4)
  - Abdominal discomfort [None]
  - Dyspepsia [None]
  - Gastrooesophageal reflux disease [None]
  - Drug effect decreased [None]
